FAERS Safety Report 9784166 (Version 3)
Quarter: 2015Q2

REPORT INFORMATION
  Report Type: Spontaneous
  Country: US (occurrence: US)
  Receive Date: 20131226
  Receipt Date: 20150511
  Transmission Date: 20150821
  Serious: No
  Sender: FDA-Public Use
  Company Number: US-009507513-1310USA010344

PATIENT
  Age: 55 Year
  Sex: Male

DRUGS (11)
  1. REBETOL [Suspect]
     Active Substance: RIBAVIRIN
     Dosage: 800 MG, QD
     Route: 048
     Dates: start: 2013, end: 20131010
  2. PEGINTRON [Suspect]
     Active Substance: PEGINTERFERON ALFA-2B
     Dosage: 0.4 ML, QW
     Route: 058
     Dates: start: 20130814, end: 20131010
  3. ELIMITE CREAM [Concomitant]
     Dosage: 5 %, PRN
     Dates: end: 20130510
  4. IBUPROFEN. [Concomitant]
     Active Substance: IBUPROFEN
     Dosage: UNK
  5. REBETOL [Suspect]
     Active Substance: RIBAVIRIN
     Indication: HEPATITIS C
     Dosage: 3 CAPSULES (600 MG) IN THE A.M. AND 2 CAPSULES (400 MG) IN THE P.M.
     Route: 048
     Dates: start: 20130724, end: 2013
  6. VICTRELIS [Suspect]
     Active Substance: BOCEPREVIR
     Indication: HEPATITIS C
     Dosage: 4 (200MG) CAPSULES THREE TIMES A DAY
     Route: 048
     Dates: start: 20130821, end: 20131010
  7. NEXIUM [Concomitant]
     Active Substance: ESOMEPRAZOLE MAGNESIUM
     Dosage: UNK
  8. TRIAMCINOLONE [Concomitant]
     Active Substance: TRIAMCINOLONE
     Dosage: 0.025 % APPLIED TWICE DAILY
     Dates: end: 20130510
  9. MYLANTA [Concomitant]
     Active Substance: ALUMINUM HYDROXIDE\MAGNESIUM HYDROXIDE\SIMETHICONE
     Dosage: UNK, Q6H, PRN
     Dates: end: 20131018
  10. PEGINTRON [Suspect]
     Active Substance: PEGINTERFERON ALFA-2B
     Indication: HEPATITIS C
     Dosage: 0.5 ML, QW
     Route: 058
     Dates: start: 20130724, end: 20130807
  11. PROVENTIL [Concomitant]
     Active Substance: ALBUTEROL
     Dosage: UNK, INHALER

REACTIONS (7)
  - Viral test positive [Recovered/Resolved]
  - White blood cell count decreased [Recovered/Resolved]
  - Platelet count decreased [Recovered/Resolved]
  - Anaemia [Recovered/Resolved]
  - Weight decreased [Recovered/Resolved]
  - Adverse event [Recovered/Resolved]
  - Haemoglobin decreased [Recovered/Resolved]

NARRATIVE: CASE EVENT DATE: 2013
